FAERS Safety Report 7909234-2 (Version None)
Quarter: 2011Q4

REPORT INFORMATION
  Report Type: 
  Country: None (occurrence: None)
  Receive Date: 20111111
  Receipt Date: 20110921
  Transmission Date: 20120403
  Serious: Yes (Other)
  Sender: FDA-Public Use
  Company Number: US-ELI_LILLY_AND_COMPANY-US201103006926

PATIENT
  Sex: Female

DRUGS (9)
  1. FORTEO [Suspect]
     Dosage: 20 UG, QD
     Route: 065
  2. VITAMIN D [Concomitant]
  3. PREDNISONE TAB [Concomitant]
     Indication: POLYMYALGIA RHEUMATICA
  4. LODIPINE [Concomitant]
  5. FORTEO [Suspect]
     Indication: OSTEOPOROSIS
     Dosage: 20 UG, DAILY (1/D)
     Route: 065
     Dates: start: 20100601
  6. FORTEO [Suspect]
     Dosage: 20 UG, DAILY (1/D)
     Route: 065
  7. FORTEO [Suspect]
     Dosage: 20 UG, QD
  8. METOPROLOL [Concomitant]
     Indication: BLOOD PRESSURE
  9. VITAMIN B-12 [Concomitant]

REACTIONS (9)
  - BREAST CANCER IN SITU [None]
  - MOVEMENT DISORDER [None]
  - MUSCULOSKELETAL DISCOMFORT [None]
  - DISCOMFORT [None]
  - FIBROCYSTIC BREAST DISEASE [None]
  - BLOOD CALCIUM INCREASED [None]
  - BREAST CALCIFICATIONS [None]
  - VERTIGO [None]
  - BONE PAIN [None]
